FAERS Safety Report 10221988 (Version 1)
Quarter: 2014Q2

REPORT INFORMATION
  Report Type: Spontaneous
  Country: IT (occurrence: IT)
  Receive Date: 20140606
  Receipt Date: 20140606
  Transmission Date: 20141212
  Serious: Yes (Hospitalization)
  Sender: FDA-Public Use
  Company Number: IT-BAYER-2014-080089

PATIENT
  Age: 65 Year
  Sex: Male

DRUGS (4)
  1. ACETYLSALICYLIC ACID (} 100 MG) [Suspect]
     Indication: THROMBOSIS PROPHYLAXIS
     Dosage: 100 MG, QD
     Route: 048
  2. ACETYLSALICYLIC ACID (} 100 MG) [Suspect]
     Indication: VASCULAR STENT INSERTION
     Dosage: 160 MG, QD
     Route: 048
  3. CLOPIDOGREL [Concomitant]
     Indication: THROMBOSIS PROPHYLAXIS
     Dosage: 75 MG, QD
     Route: 048
  4. CLOPIDOGREL [Concomitant]
     Indication: VASCULAR STENT INSERTION

REACTIONS (3)
  - Thrombosis in device [Recovered/Resolved]
  - Peripheral ischaemia [Recovered/Resolved]
  - Drug ineffective [Recovered/Resolved]
